FAERS Safety Report 6418908-4 (Version None)
Quarter: 2009Q4

REPORT INFORMATION
  Report Type: 
  Country: None (occurrence: None)
  Receive Date: 20091028
  Receipt Date: 20091028
  Transmission Date: 20100525
  Serious: Yes (Life-Threatening, Hospitalization)
  Sender: FDA-Public Use
  Company Number: None

PATIENT
  Age: 40 Year
  Sex: Female
  Weight: 90.7194 kg

DRUGS (1)
  1. PHENYTOIN [Suspect]
     Indication: CONVULSION
     Dosage: 3 TABLETS NIGHTLY PO
     Route: 048
     Dates: start: 20090729, end: 20090828

REACTIONS (3)
  - LIVER FUNCTION TEST ABNORMAL [None]
  - SPLENIC INFARCTION [None]
  - STEVENS-JOHNSON SYNDROME [None]
